FAERS Safety Report 5475649-8 (Version None)
Quarter: 2007Q4

REPORT INFORMATION
  Report Type: 
  Country: None (occurrence: None)
  Receive Date: 20071003
  Receipt Date: 20070927
  Transmission Date: 20080405
  Serious: Yes (Hospitalization)
  Sender: FDA-Public Use
  Company Number: FR-AVENTIS-200611953FR

PATIENT
  Age: 61 Year
  Sex: Male

DRUGS (9)
  1. LASIX [Suspect]
     Route: 048
     Dates: end: 20060413
  2. HYPERIUM                           /00939801/ [Suspect]
     Route: 048
  3. RAPAMUNE [Suspect]
     Route: 048
  4. EUPRESSYL                          /00631801/ [Suspect]
     Route: 048
  5. LEXOMIL [Suspect]
     Route: 048
     Dates: end: 20060410
  6. AMLOR [Suspect]
     Route: 048
  7. OROCAL VITAMIN D [Concomitant]
     Indication: DRUG USE FOR UNKNOWN INDICATION
     Route: 048
  8. PAROXETINE [Concomitant]
     Indication: DRUG USE FOR UNKNOWN INDICATION
     Route: 048
  9. LOVENOX [Concomitant]
     Indication: DRUG USE FOR UNKNOWN INDICATION
     Route: 058

REACTIONS (1)
  - GUILLAIN-BARRE SYNDROME [None]
